FAERS Safety Report 4468986-7 (Version None)
Quarter: 2004Q4

REPORT INFORMATION
  Report Type: 
  Country: None (occurrence: None)
  Receive Date: 20041004
  Receipt Date: 20041004
  Transmission Date: 20050328
  Serious: Yes (Other)
  Sender: FDA-Public Use
  Company Number: None

PATIENT
  Age: 61 Year
  Sex: Male
  Weight: 49 kg

DRUGS (22)
  1. TERAZOSIN HCL [Suspect]
  2. HYDROCODONE2/ACETAMINOPHEN 500MG [Concomitant]
  3. TAMSULOSIN HCL [Concomitant]
  4. LOPERAMIDE HCL [Concomitant]
  5. ACETAMINOPHEN [Concomitant]
  6. VENLAFAXINE HCL [Concomitant]
  7. CILOSTAZOL [Concomitant]
  8. NITROFURANTOIN [Concomitant]
  9. MACROCRYST [Concomitant]
  10. GATIFLOXACIN [Concomitant]
  11. ALOH/MGOH SIMTH XTRA STRENGTH SUSP [Concomitant]
  12. PHENAZOPYRIDINE HCL TAB [Concomitant]
  13. SULFAMETHOXAZOLE 800/TRIMETH 160MG [Concomitant]
  14. DOCUSATE NA [Concomitant]
  15. OMEPRAZOLE [Concomitant]
  16. SILDENAFIL CITRATE [Concomitant]
  17. MELOXICAM [Concomitant]
  18. MULTI-VITAMIN [Concomitant]
  19. PSEUDOEPHEDRINE HCL [Concomitant]
  20. MILK OF MAGNESIA TAB [Concomitant]
  21. ALBUTEROL 90/INPRATROP [Concomitant]
  22. HYDROCORTISONE CREAM [Concomitant]

REACTIONS (1)
  - DIZZINESS [None]
